FAERS Safety Report 15849695 (Version 1)
Quarter: 2019Q1

REPORT INFORMATION
  Report Type: Spontaneous
  Country: FR (occurrence: FR)
  Receive Date: 20190121
  Receipt Date: 20190121
  Transmission Date: 20190417
  Serious: Yes (Other)
  Sender: FDA-Public Use
  Company Number: FR-MYLANLABS-2019M1005001

PATIENT
  Age: 6 Year
  Sex: Female

DRUGS (1)
  1. HYDROXYCHLOROQUINE [Suspect]
     Active Substance: HYDROXYCHLOROQUINE
     Indication: PULMONARY HAEMOSIDEROSIS
     Dosage: UNK

REACTIONS (2)
  - Pulmonary haemosiderosis [Unknown]
  - Disease recurrence [Unknown]
